FAERS Safety Report 24000628 (Version 1)
Quarter: 2024Q2

REPORT INFORMATION
  Report Type: Spontaneous
  Country: US (occurrence: None)
  Receive Date: 20240621
  Receipt Date: 20240621
  Transmission Date: 20240716
  Serious: Yes (Life-Threatening, Hospitalization)
  Sender: FDA-Public Use
  Company Number: None

PATIENT
  Age: 52 Year
  Sex: Female
  Weight: 81 kg

DRUGS (9)
  1. OMEPRAZOLE [Suspect]
     Active Substance: DONEPEZIL HYDROCHLORIDE\OMEPRAZOLE\OMEPRAZOLE MAGNESIUM
     Indication: Gastrooesophageal reflux disease
  2. OMEPRAZOLE [Suspect]
     Active Substance: DONEPEZIL HYDROCHLORIDE\OMEPRAZOLE\OMEPRAZOLE MAGNESIUM
     Indication: Anastomotic ulcer
  3. CARAFATE [Concomitant]
     Active Substance: SUCRALFATE
  4. NM-6603 [Concomitant]
     Active Substance: NM-6603
  5. CALCIUM CITRATE [Concomitant]
     Active Substance: CALCIUM CITRATE
  6. PROBIOTICS NOS [Concomitant]
     Active Substance: PROBIOTICS NOS
  7. multi vitamin [Concomitant]
  8. RED YEAST RICE [Concomitant]
  9. allergy pill [Concomitant]

REACTIONS (2)
  - Dialysis [None]
  - Nephrogenic anaemia [None]

NARRATIVE: CASE EVENT DATE: 20221105
